FAERS Safety Report 21497815 (Version 1)
Quarter: 2022Q4

REPORT INFORMATION
  Report Type: Report from Study
  Country: US (occurrence: US)
  Receive Date: 20221024
  Receipt Date: 20221024
  Transmission Date: 20230113
  Serious: Yes (Hospitalization)
  Sender: FDA-Public Use
  Company Number: US-BoehringerIngelheim-2020-BI-052647

PATIENT
  Age: 79 Year
  Sex: Female

DRUGS (2)
  1. OFEV [Suspect]
     Active Substance: NINTEDANIB
     Indication: Pulmonary fibrosis
     Route: 048
     Dates: start: 20200919, end: 20210627
  2. OFEV [Suspect]
     Active Substance: NINTEDANIB
     Indication: Idiopathic pulmonary fibrosis
     Route: 048
     Dates: start: 202106

REACTIONS (29)
  - Urticaria [Recovered/Resolved]
  - Urticaria [Recovered/Resolved]
  - Procedural pain [Not Recovered/Not Resolved]
  - Irritable bowel syndrome [Not Recovered/Not Resolved]
  - Pain [Recovered/Resolved]
  - Muscle strain [Recovered/Resolved]
  - Constipation [Not Recovered/Not Resolved]
  - Pruritus [Recovered/Resolved]
  - Paraesthesia [Not Recovered/Not Resolved]
  - Lung disorder [Not Recovered/Not Resolved]
  - Herpes zoster [Not Recovered/Not Resolved]
  - Diarrhoea [Recovered/Resolved]
  - Gastrointestinal disorder [Recovered/Resolved]
  - Arthritis [Unknown]
  - Decreased appetite [Unknown]
  - Product storage error [Unknown]
  - Food aversion [Unknown]
  - Faeces discoloured [Unknown]
  - Pain [Unknown]
  - Weight decreased [Not Recovered/Not Resolved]
  - Peripheral coldness [Not Recovered/Not Resolved]
  - Headache [Unknown]
  - Post procedural diarrhoea [Recovered/Resolved]
  - Urinary tract infection [Not Recovered/Not Resolved]
  - Fatigue [Not Recovered/Not Resolved]
  - Cough [Unknown]
  - Nausea [Recovered/Resolved]
  - Rosacea [Unknown]
  - Adhesion [Unknown]

NARRATIVE: CASE EVENT DATE: 20200901
